FAERS Safety Report 4861284-9 (Version None)
Quarter: 2005Q4

REPORT INFORMATION
  Report Type: 
  Country: None (occurrence: None)
  Receive Date: 20051220
  Receipt Date: 20051005
  Transmission Date: 20060501
  Serious: Yes (Hospitalization)
  Sender: FDA-Public Use
  Company Number: US-MERCK-0510USA03446

PATIENT
  Age: 61 Year
  Sex: Male
  Weight: 95 kg

DRUGS (6)
  1. VIOXX [Suspect]
     Indication: OSTEOARTHRITIS
     Route: 048
     Dates: start: 20040403, end: 20041101
  2. VIOXX [Suspect]
     Route: 048
     Dates: start: 20031212
  3. DIOVAN HCT [Concomitant]
     Route: 048
  4. LIPITOR [Concomitant]
     Route: 048
  5. NEXIUM [Concomitant]
     Route: 048
  6. FAMOTIDINE [Concomitant]
     Route: 048

REACTIONS (17)
  - ANAEMIA [None]
  - ANGINA UNSTABLE [None]
  - AORTIC VALVE INCOMPETENCE [None]
  - AORTIC VALVE PROLAPSE [None]
  - CARDIOMEGALY [None]
  - CARDIOVASCULAR DISORDER [None]
  - CHEST PAIN [None]
  - CONSTIPATION [None]
  - CORONARY ARTERY DISEASE [None]
  - DERMATITIS [None]
  - LIMB DISCOMFORT [None]
  - MYALGIA [None]
  - MYOCARDIAL ISCHAEMIA [None]
  - OBESITY [None]
  - PLEURAL EFFUSION [None]
  - PYREXIA [None]
  - SLEEP APNOEA SYNDROME [None]
